FAERS Safety Report 22044825 (Version 1)
Quarter: 2023Q1

REPORT INFORMATION
  Report Type: Spontaneous
  Country: US (occurrence: US)
  Receive Date: 20230228
  Receipt Date: 20230228
  Transmission Date: 20230418
  Serious: Yes (Hospitalization)
  Sender: FDA-Public Use
  Company Number: US-SA-SAC20230227001440

PATIENT
  Sex: Female
  Weight: 88.4 kg

DRUGS (10)
  1. DUPIXENT [Suspect]
     Active Substance: DUPILUMAB
     Indication: Nasal polyps
     Dosage: 300MG, QOW
     Route: 058
  2. LOVASTATIN [Concomitant]
     Active Substance: LOVASTATIN
  3. VITAMIN D2 [Concomitant]
     Active Substance: ERGOCALCIFEROL
  4. CYANOCOBALAMIN [Concomitant]
     Active Substance: CYANOCOBALAMIN
  5. FERROUS SULFATE [Concomitant]
     Active Substance: FERROUS SULFATE
  6. PREVACID [Concomitant]
     Active Substance: LANSOPRAZOLE
  7. TOPIRAMATE [Concomitant]
     Active Substance: TOPIRAMATE
  8. CITALOPRAM HYDROBROMIDE [Concomitant]
     Active Substance: CITALOPRAM HYDROBROMIDE
  9. CLONIDINE HYDROCHLORIDE [Concomitant]
     Active Substance: CLONIDINE HYDROCHLORIDE
  10. AMLODIPINE\VALSARTAN [Concomitant]
     Active Substance: AMLODIPINE\VALSARTAN

REACTIONS (8)
  - Chest pain [Unknown]
  - Vomiting [Unknown]
  - Gastrooesophageal reflux disease [Unknown]
  - Ear infection [Unknown]
  - Middle ear effusion [Unknown]
  - Hernia [Unknown]
  - Ear discomfort [Unknown]
  - Sinusitis [Not Recovered/Not Resolved]
